FAERS Safety Report 7640130-4 (Version None)
Quarter: 2011Q3

REPORT INFORMATION
  Report Type: 
  Country: None (occurrence: None)
  Receive Date: 20110728
  Receipt Date: 20110628
  Transmission Date: 20111222
  Serious: No
  Sender: FDA-Public Use
  Company Number: US-BAYER-2011-058364

PATIENT
  Sex: Female

DRUGS (3)
  1. ALEVE (CAPLET) [Suspect]
     Route: 048
  2. ADVIL LIQUI-GELS [Suspect]
  3. TYLENOL-500 [Suspect]

REACTIONS (1)
  - DRUG INEFFECTIVE [None]
